FAERS Safety Report 8490369-3 (Version None)
Quarter: 2012Q3

REPORT INFORMATION
  Report Type: 
  Country: None (occurrence: None)
  Receive Date: 20120705
  Receipt Date: 20120625
  Transmission Date: 20120928
  Serious: Yes (Other)
  Sender: FDA-Public Use
  Company Number: US-CELGENEUS-163-50794-12061464

PATIENT
  Sex: Female

DRUGS (17)
  1. BONIVA [Concomitant]
     Dates: start: 20070614
  2. LOVAZA [Concomitant]
     Dates: start: 20070614
  3. AMOXIL [Concomitant]
     Dates: start: 20070614, end: 20120227
  4. NEULASTA [Concomitant]
     Route: 065
  5. K LYTE CL [Concomitant]
     Dates: start: 20070614
  6. SYNTHROID [Concomitant]
     Dates: start: 20120614
  7. VIDAZA [Suspect]
     Route: 065
     Dates: end: 20071101
  8. COMPAZINE [Concomitant]
     Dosage: UNKNOWN
     Dates: start: 20070614, end: 20120227
  9. VIDAZA [Suspect]
     Dosage: 130 MILLIGRAM
     Route: 065
     Dates: start: 20080301, end: 20110819
  10. CALCIUM CARBONATE [Concomitant]
     Dosage: UNKLNOWN
     Dates: start: 20070614
  11. BLOOD TRANSFUSIONS [Concomitant]
     Route: 065
  12. IMODIUM [Concomitant]
     Dates: start: 20070614, end: 20120227
  13. MULTI-VITAMINS [Concomitant]
     Dates: start: 20070614
  14. ARANESP [Concomitant]
     Dates: start: 20070614, end: 20120227
  15. DMB [Concomitant]
     Dosage: UNKNOWN
     Dates: start: 20070614, end: 20120227
  16. LOMOTIL [Concomitant]
     Dates: start: 20070614
  17. PEPCID [Concomitant]
     Dates: start: 20120614

REACTIONS (4)
  - BREAST CANCER RECURRENT [None]
  - ORAL HERPES [None]
  - OEDEMA PERIPHERAL [None]
  - HAEMOGLOBIN DECREASED [None]
